FAERS Safety Report 6715002-X (Version None)
Quarter: 2010Q2

REPORT INFORMATION
  Report Type: 
  Country: None (occurrence: None)
  Receive Date: 20100507
  Receipt Date: 20100417
  Transmission Date: 20101027
  Serious: Yes (Hospitalization)
  Sender: FDA-Public Use
  Company Number: GB-TEVA-228516ISR

PATIENT
  Sex: Male

DRUGS (16)
  1. PREDNISOLONE [Suspect]
     Indication: PROSTATE CANCER METASTATIC
     Route: 048
     Dates: start: 20081003
  2. PREDNISOLONE [Suspect]
     Route: 048
     Dates: start: 20081221
  3. PREDNISOLONE [Suspect]
     Route: 048
     Dates: start: 20090121
  4. ABIRATERONE ACETATE OR PLACEBO [Suspect]
     Indication: PROSTATE CANCER METASTATIC
     Route: 048
     Dates: start: 20081003, end: 20090603
  5. GOSERELIN [Concomitant]
     Indication: PROSTATE CANCER
     Route: 058
     Dates: start: 20081003, end: 20090706
  6. SENNA ALEXANDRINA [Concomitant]
     Indication: CONSTIPATION
     Dates: start: 20090220, end: 20090706
  7. PANADEINE CO [Concomitant]
     Indication: CANCER PAIN
     Dates: start: 20090511, end: 20090706
  8. LANSOPRAZOLE [Concomitant]
     Indication: PROPHYLAXIS
     Route: 048
     Dates: start: 20090218, end: 20090706
  9. DEXAMETHASONE [Concomitant]
     Indication: SPINAL CORD COMPRESSION
     Route: 048
     Dates: start: 20090603, end: 20090706
  10. FORTISIP [Concomitant]
     Indication: MEDICAL DIET
     Route: 048
     Dates: start: 20090415, end: 20090706
  11. TOLTERODINE [Concomitant]
     Indication: MICTURITION URGENCY
     Route: 048
     Dates: start: 20090506, end: 20090706
  12. TOLTERODINE [Concomitant]
     Indication: POLLAKIURIA
  13. DICLOFENAC [Concomitant]
     Indication: MUSCULOSKELETAL PAIN
     Route: 048
     Dates: start: 20090428, end: 20090706
  14. DICLOFENAC [Concomitant]
     Indication: ARTHRALGIA
  15. DICLOFENAC [Concomitant]
     Indication: PAIN IN EXTREMITY
  16. CEPHALEXIN [Concomitant]
     Indication: URINARY TRACT INFECTION
     Route: 048
     Dates: start: 20090513, end: 20090706

REACTIONS (1)
  - PNEUMONIA [None]
